FAERS Safety Report 4277042-2 (Version None)
Quarter: 2004Q1

REPORT INFORMATION
  Report Type: 
  Country: None (occurrence: None)
  Receive Date: 20040120
  Receipt Date: 20040112
  Transmission Date: 20041129
  Serious: Yes (Life-Threatening)
  Sender: FDA-Public Use
  Company Number: 2004AP00162

PATIENT
  Age: 69 Year
  Sex: Male
  Weight: 60.8 kg

DRUGS (7)
  1. IRESSA [Suspect]
     Indication: OESOPHAGEAL SQUAMOUS CELL CARCINOMA
     Dosage: 250 MG DAILY PO
     Route: 048
     Dates: start: 20031220, end: 20040107
  2. IMODIUM ^JANSSEN^ [Concomitant]
  3. CHARCOAL [Concomitant]
  4. MEGACE [Concomitant]
  5. CISPLATIN [Concomitant]
  6. FLUOROURACIL [Concomitant]
  7. RADIOTHERAPY [Concomitant]

REACTIONS (5)
  - COUGH [None]
  - DYSPNOEA [None]
  - LETHARGY [None]
  - PYREXIA [None]
  - RESPIRATORY FAILURE [None]
